FAERS Safety Report 14592846 (Version 1)
Quarter: 2018Q1

REPORT INFORMATION
  Report Type: Spontaneous
  Country: GB (occurrence: GB)
  Receive Date: 20180302
  Receipt Date: 20180302
  Transmission Date: 20180509
  Serious: Yes (Hospitalization)
  Sender: FDA-Public Use
  Company Number: GB-BAUSCH-BL-2018-005415

PATIENT
  Age: 74 Year
  Sex: Male

DRUGS (10)
  1. LANSOPRAZOLE. [Concomitant]
     Active Substance: LANSOPRAZOLE
     Indication: PRODUCT USED FOR UNKNOWN INDICATION
  2. NAFTIDROFURYL [Suspect]
     Active Substance: NAFRONYL
     Indication: PERIPHERAL VASCULAR DISORDER
     Route: 048
     Dates: start: 20171031, end: 20171110
  3. NOVORAPID [Concomitant]
     Active Substance: INSULIN ASPART
     Indication: PRODUCT USED FOR UNKNOWN INDICATION
  4. METFORMIN [Concomitant]
     Active Substance: METFORMIN HYDROCHLORIDE
     Indication: PRODUCT USED FOR UNKNOWN INDICATION
  5. ACETYLSALICYLIC ACID [Concomitant]
     Active Substance: ASPIRIN
     Indication: PRODUCT USED FOR UNKNOWN INDICATION
  6. FENOFIBRATE MICRONISED [Suspect]
     Active Substance: FENOFIBRATE
     Indication: PRODUCT USED FOR UNKNOWN INDICATION
     Route: 048
     Dates: end: 20171115
  7. CANDESARTAN. [Concomitant]
     Active Substance: CANDESARTAN
     Indication: PRODUCT USED FOR UNKNOWN INDICATION
  8. LANTUS [Concomitant]
     Active Substance: INSULIN GLARGINE
     Indication: PRODUCT USED FOR UNKNOWN INDICATION
  9. ATORVASTATIN [Suspect]
     Active Substance: ATORVASTATIN
     Indication: MUSCLE SPASMS
     Dosage: 2 DAYS
     Route: 048
     Dates: end: 20171115
  10. HYDROXOCOBALAMIN [Concomitant]
     Active Substance: HYDROXOCOBALAMIN
     Indication: PRODUCT USED FOR UNKNOWN INDICATION

REACTIONS (9)
  - Alanine aminotransferase increased [None]
  - Liver function test abnormal [Unknown]
  - Troponin I increased [None]
  - Prothrombin time prolonged [None]
  - Atrial flutter [Unknown]
  - Dyspnoea [Unknown]
  - Coagulopathy [Unknown]
  - Activated partial thromboplastin time prolonged [None]
  - Blood creatinine increased [None]

NARRATIVE: CASE EVENT DATE: 20171115
